FAERS Safety Report 24331354 (Version 1)
Quarter: 2024Q3

REPORT INFORMATION
  Report Type: Report from Study
  Country: US (occurrence: US)
  Receive Date: 20240918
  Receipt Date: 20240918
  Transmission Date: 20241017
  Serious: Yes (Hospitalization, Other)
  Sender: AUROBINDO
  Company Number: US-AUROBINDO-AUR-APL-2024-045799

PATIENT
  Age: 72 Year
  Sex: Female

DRUGS (27)
  1. BELINOSTAT [Suspect]
     Active Substance: BELINOSTAT
     Indication: Angioimmunoblastic T-cell lymphoma
     Dosage: 600 MILLIGRAM/SQ. METER, CYCLICAL (CYCLE 2 DAY 1 TO DAY 5)
     Route: 042
     Dates: start: 20240406, end: 20240408
  2. BELINOSTAT [Suspect]
     Active Substance: BELINOSTAT
     Dosage: 600 MILLIGRAM/SQ. METER, CYCLICAL (CYCLE 2 DAY 1 TO DAY 5)
     Route: 042
     Dates: end: 20240428
  3. BELINOSTAT [Suspect]
     Active Substance: BELINOSTAT
     Dosage: 600 MILLIGRAM/SQ. METER, CYCLICAL (CYCLE 4 DAY 1 TO DAY 5)
     Route: 042
     Dates: start: 20240716, end: 20240720
  4. BELINOSTAT [Suspect]
     Active Substance: BELINOSTAT
     Dosage: 600 MILLIGRAM/SQ. METER, CYCLICAL (CYCLE 5 DAY 1 TO DAY 5),
     Route: 042
     Dates: start: 20240806, end: 20240810
  5. BELINOSTAT [Suspect]
     Active Substance: BELINOSTAT
     Dosage: 600 MILLIGRAM/SQ. METER, CYCLICAL (CYCLE 6 DAY 2 TO DAY 3)
     Route: 042
     Dates: start: 20240828
  6. CYCLOPHOSPHAMIDE [Suspect]
     Active Substance: CYCLOPHOSPHAMIDE
     Indication: Angioimmunoblastic T-cell lymphoma
     Dosage: 750 MILLIGRAM/SQ. METER, CYCLICAL (C2D1)
     Route: 042
     Dates: start: 20240604, end: 20240604
  7. CYCLOPHOSPHAMIDE [Suspect]
     Active Substance: CYCLOPHOSPHAMIDE
     Dosage: 750 MILLIGRAM/SQ. METER, CYCLICAL (C3D1)
     Route: 042
     Dates: start: 20240624, end: 20240624
  8. CYCLOPHOSPHAMIDE [Suspect]
     Active Substance: CYCLOPHOSPHAMIDE
     Dosage: 750 MILLIGRAM/SQ. METER, CYCLICAL  (C4D1)
     Route: 042
     Dates: start: 20240716, end: 20240716
  9. CYCLOPHOSPHAMIDE [Suspect]
     Active Substance: CYCLOPHOSPHAMIDE
     Dosage: 750 MILLIGRAM/SQ. METER, CYCLICAL  (C5D1)
     Route: 042
     Dates: start: 20240806, end: 20240806
  10. PREDNISONE [Suspect]
     Active Substance: PREDNISONE
     Indication: Angioimmunoblastic T-cell lymphoma
     Dosage: 100 MILLIGRAM/SQ. METER, CYCLICAL (CYCLE3 DAY1-DAY 5)
     Route: 048
     Dates: start: 20240604, end: 20240608
  11. PREDNISONE [Suspect]
     Active Substance: PREDNISONE
     Dosage: 100 MILLIGRAM/SQ. METER, CYCLICAL (CYCLE3 DAY1-DAY 5)
     Route: 048
     Dates: start: 20240624, end: 20240628
  12. PREDNISONE [Suspect]
     Active Substance: PREDNISONE
     Dosage: 100 MILLIGRAM/SQ. METER, CYCLICAL (CYCLE 4 DAY1-DAY 5)
     Route: 048
     Dates: start: 20240716, end: 20240720
  13. PREDNISONE [Suspect]
     Active Substance: PREDNISONE
     Dosage: 100 MILLIGRAM/SQ. METER, CYCLICAL (CYCLE 5 DAY1-DAY 5)
     Route: 048
     Dates: start: 20240806, end: 20240810
  14. PREDNISONE [Suspect]
     Active Substance: PREDNISONE
     Dosage: 100 MILLIGRAM/SQ. METER, CYCLICAL (CYCLE 5 DAY1-DAY 5)
     Route: 048
     Dates: start: 20240828
  15. DOXORUBICIN [Suspect]
     Active Substance: DOXORUBICIN
     Indication: Angioimmunoblastic T-cell lymphoma
     Dosage: 50 MILLIGRAM/SQ. METER, CYCLICAL CYCLE 2 DAY 1)
     Route: 042
     Dates: start: 20240604, end: 20240604
  16. DOXORUBICIN [Suspect]
     Active Substance: DOXORUBICIN
     Dosage: 50 MILLIGRAM/SQ. METER, CYCLICAL (CYCLE 3 DAY 1)
     Route: 042
     Dates: start: 20240624, end: 20240624
  17. DOXORUBICIN [Suspect]
     Active Substance: DOXORUBICIN
     Dosage: 50 MILLIGRAM/SQ. METER, CYCLICAL (CYCLE 4 DAY 1)
     Route: 042
     Dates: start: 20240716, end: 20240716
  18. DOXORUBICIN [Suspect]
     Active Substance: DOXORUBICIN
     Dosage: 50 MILLIGRAM/SQ. METER, CYCLICAL (CYCLE 5 DAY 1)
     Route: 042
     Dates: start: 20240806, end: 20240806
  19. ONCOVIN [Suspect]
     Active Substance: VINCRISTINE SULFATE
     Indication: Angioimmunoblastic T-cell lymphoma
     Dosage: 1.4 MILLIGRAM/SQ. METER, CYCLICAL (CYCLE 2, DAY 1)
     Route: 042
     Dates: start: 20240604, end: 20240604
  20. ONCOVIN [Suspect]
     Active Substance: VINCRISTINE SULFATE
     Dosage: 1.4 MILLIGRAM/SQ. METER, CYCLICAL (CYCLE 3, DAY 1)
     Route: 042
     Dates: start: 20240624, end: 20240624
  21. ONCOVIN [Suspect]
     Active Substance: VINCRISTINE SULFATE
     Dosage: 1.4 MILLIGRAM/SQ. METER, CYCLICAL (CYCLE 4, DAY 1)
     Route: 042
     Dates: start: 20240716, end: 20240716
  22. ONCOVIN [Suspect]
     Active Substance: VINCRISTINE SULFATE
     Dosage: 1.4 MILLIGRAM/SQ. METER, CYCLICAL (CYCLE 5, DAY 1)
     Route: 042
     Dates: start: 20240806, end: 20240806
  23. FOLVITE [Concomitant]
     Active Substance: FOLIC ACID
     Indication: Product used for unknown indication
     Dosage: UNK
     Route: 065
     Dates: start: 20240423
  24. LIPITOR [Concomitant]
     Active Substance: ATORVASTATIN CALCIUM
     Indication: Product used for unknown indication
     Dosage: UNK
     Route: 065
     Dates: start: 20240418
  25. GLUCOPHAGE [Concomitant]
     Active Substance: METFORMIN HYDROCHLORIDE
     Indication: Product used for unknown indication
     Dosage: UNK
     Route: 065
     Dates: start: 20240418
  26. POLYETHYLENE GLYCOL 3350 [Concomitant]
     Active Substance: POLYETHYLENE GLYCOL 3350
     Indication: Product used for unknown indication
     Dosage: UNK
     Route: 065
     Dates: start: 20240524
  27. DOCUSATE SODIUM [Concomitant]
     Active Substance: DOCUSATE SODIUM
     Indication: Product used for unknown indication
     Dosage: UNK
     Route: 065
     Dates: start: 20240524

REACTIONS (1)
  - Febrile neutropenia [Unknown]

NARRATIVE: CASE EVENT DATE: 20240904
